FAERS Safety Report 9630482 (Version 2)
Quarter: 2014Q1

REPORT INFORMATION
  Report Type: Report from Study
  Country: US (occurrence: US)
  Receive Date: 20131018
  Receipt Date: 20140203
  Transmission Date: 20141002
  Serious: No
  Sender: FDA-Public Use
  Company Number: US-009507513-1310USA008102

PATIENT
  Age: 38 Year
  Sex: Female

DRUGS (3)
  1. VICTRELIS [Suspect]
     Indication: CHRONIC HEPATITIS C
     Dosage: UNK
     Dates: start: 20130906
  2. REBETOL [Suspect]
     Indication: CHRONIC HEPATITIS C
     Dosage: 1400 MG QD
     Dates: start: 20130906
  3. PEGASYS [Suspect]
     Indication: CHRONIC HEPATITIS C
     Dosage: 180 MICROGRAM, QW
     Dates: start: 20130809, end: 20140117

REACTIONS (2)
  - Nausea [Unknown]
  - Fatigue [Unknown]
